FAERS Safety Report 23046238 (Version 1)
Quarter: 2023Q4

REPORT INFORMATION
  Report Type: Spontaneous
  Country: US (occurrence: US)
  Receive Date: 20231009
  Receipt Date: 20231009
  Transmission Date: 20240109
  Serious: No
  Sender: FDA-Public Use
  Company Number: US-AMGEN-USASP2023176678

PATIENT

DRUGS (1)
  1. REPATHA [Suspect]
     Active Substance: EVOLOCUMAB
     Indication: Blood cholesterol increased
     Route: 065

REACTIONS (7)
  - Insomnia [Unknown]
  - Neck pain [Recovered/Resolved]
  - Tendon pain [Recovering/Resolving]
  - Gait inability [Recovering/Resolving]
  - Quality of life decreased [Unknown]
  - Muscle spasms [Recovered/Resolved]
  - Arthralgia [Recovered/Resolved]
